FAERS Safety Report 5338295-2 (Version None)
Quarter: 2007Q2

REPORT INFORMATION
  Report Type: 
  Country: None (occurrence: None)
  Receive Date: 20070327
  Receipt Date: 20070222
  Transmission Date: 20071010
  Serious: Yes (Other)
  Sender: FDA-Public Use
  Company Number: 237161

PATIENT
  Sex: Male

DRUGS (1)
  1. AVASTIN [Suspect]
     Indication: OESOPHAGEAL CARCINOMA
     Dates: start: 20060608

REACTIONS (1)
  - WOUND DEHISCENCE [None]
